FAERS Safety Report 7682250-4 (Version None)
Quarter: 2011Q3

REPORT INFORMATION
  Report Type: 
  Country: None (occurrence: None)
  Receive Date: 20110815
  Receipt Date: 20110804
  Transmission Date: 20111222
  Serious: Yes (Hospitalization, Other)
  Sender: FDA-Public Use
  Company Number: TR-US-EMD SERONO, INC.-7063771

PATIENT
  Sex: Female
  Weight: 54 kg

DRUGS (3)
  1. LANSOR [Concomitant]
  2. REBIF [Suspect]
     Indication: RELAPSING-REMITTING MULTIPLE SCLEROSIS
     Route: 058
     Dates: start: 20081101
  3. MINOSET [Concomitant]

REACTIONS (2)
  - METASTASES TO LYMPH NODES [None]
  - BREAST CANCER [None]
